FAERS Safety Report 6858298-6 (Version None)
Quarter: 2010Q3

REPORT INFORMATION
  Report Type: 
  Country: None (occurrence: None)
  Receive Date: 20100719
  Receipt Date: 20080315
  Transmission Date: 20110219
  Serious: No
  Sender: FDA-Public Use
  Company Number: US-PFIZER INC-2008012126

PATIENT
  Sex: Female
  Weight: 97.272 kg

DRUGS (6)
  1. CHANTIX [Suspect]
     Indication: EX-TOBACCO USER
     Dates: start: 20080130
  2. LEVOTHYROXINE SODIUM [Concomitant]
  3. REQUIP [Concomitant]
  4. TYLENOL [Concomitant]
  5. PREDNISONE [Concomitant]
  6. XANAX [Concomitant]

REACTIONS (6)
  - ABDOMINAL PAIN [None]
  - DRY EYE [None]
  - EMOTIONAL DISORDER [None]
  - HEADACHE [None]
  - NASAL DRYNESS [None]
  - NAUSEA [None]
